FAERS Safety Report 7280627-2 (Version None)
Quarter: 2011Q1

REPORT INFORMATION
  Report Type: 
  Country: None (occurrence: None)
  Receive Date: 20110126
  Receipt Date: 20110114
  Transmission Date: 20110831
  Serious: Yes (Other)
  Sender: FDA-Public Use
  Company Number: 023409

PATIENT
  Sex: Female
  Weight: 69 kg

DRUGS (5)
  1. TRILEPTAL [Concomitant]
  2. LACOSAMIDE [Suspect]
     Indication: COMPLEX PARTIAL SEIZURES
     Dosage: (50 MG ORAL), (100 MG BID ORAL)
     Route: 048
     Dates: start: 20090729, end: 20090801
  3. LACOSAMIDE [Suspect]
     Indication: COMPLEX PARTIAL SEIZURES
     Dosage: (50 MG ORAL), (100 MG BID ORAL)
     Route: 048
     Dates: start: 20090801
  4. OXCARBAZEPINE [Concomitant]
  5. KLONOPIN [Concomitant]

REACTIONS (2)
  - WEIGHT INCREASED [None]
  - STATUS EPILEPTICUS [None]
